FAERS Safety Report 6709290-3 (Version None)
Quarter: 2010Q2

REPORT INFORMATION
  Report Type: 
  Country: None (occurrence: None)
  Receive Date: 20100504
  Receipt Date: 20100429
  Transmission Date: 20101027
  Serious: Yes (Hospitalization)
  Sender: FDA-Public Use
  Company Number: US-ELI_LILLY_AND_COMPANY-US201004008561

PATIENT
  Sex: Female

DRUGS (15)
  1. HUMATROPE [Suspect]
     Indication: GROWTH HORMONE DEFICIENCY
  2. AZOR [Concomitant]
  3. TEKTURNA /01763601/ [Concomitant]
  4. LASIX [Concomitant]
  5. LEVOTHYROXINE [Concomitant]
  6. JANUVIA [Concomitant]
  7. LUTEIN [Concomitant]
  8. TEMAZEPAM [Concomitant]
  9. FLUROXENE [Concomitant]
  10. POTASSIUM CHLORIDE [Concomitant]
  11. ZOCOR [Concomitant]
  12. ASPIRIN [Concomitant]
  13. MULTI-VITAMIN [Concomitant]
  14. IRON [Concomitant]
  15. FOLIC ACID [Concomitant]

REACTIONS (2)
  - FALL [None]
  - MONARTHRITIS [None]
